FAERS Safety Report 19241258 (Version 1)
Quarter: 2021Q2

REPORT INFORMATION
  Report Type: Other
  Country: IN (occurrence: IN)
  Receive Date: 20210511
  Receipt Date: 20210511
  Transmission Date: 20210717
  Serious: Yes (Hospitalization, Other)
  Sender: FDA-Public Use
  Company Number: IN-ROCHE-2827276

PATIENT
  Age: 60 Year
  Sex: Male

DRUGS (2)
  1. ACCENTRIX [Suspect]
     Active Substance: RANIBIZUMAB
     Indication: AGE-RELATED MACULAR DEGENERATION
     Route: 047
     Dates: start: 20200312
  2. ACCENTRIX [Suspect]
     Active Substance: RANIBIZUMAB
     Route: 065
     Dates: start: 20200828

REACTIONS (4)
  - Eye irritation [Unknown]
  - Ocular hyperaemia [Unknown]
  - Endophthalmitis [Unknown]
  - Swelling [Unknown]

NARRATIVE: CASE EVENT DATE: 20200907
